FAERS Safety Report 21191479 (Version 1)
Quarter: 2022Q3

REPORT INFORMATION
  Report Type: Report from Study
  Country: US (occurrence: US)
  Receive Date: 20220809
  Receipt Date: 20220809
  Transmission Date: 20221027
  Serious: Yes (Hospitalization, Other)
  Sender: FDA-Public Use
  Company Number: US-BAXTER-2021BAX007976

PATIENT
  Age: 69 Year
  Sex: Male
  Weight: 103.1 kg

DRUGS (19)
  1. CYCLOPHOSPHAMIDE [Suspect]
     Active Substance: CYCLOPHOSPHAMIDE
     Indication: Prophylaxis against graft versus host disease
     Dosage: 50 MG/KG, FIRST DOSE, (DAYS 3 AND 4 AFTER ALLOGENEIC-HEMATOPOIETIC SCT), PM
     Route: 042
     Dates: start: 20200614, end: 20200615
  2. TACROLIMUS [Suspect]
     Active Substance: TACROLIMUS
     Indication: Prophylaxis against graft versus host disease
     Dosage: 2.4 MG, DAILY, PM, FIRST DOSE, DOSAGE AND FREQUENCY PER INSTITUTIONAL PRACTICES
     Route: 042
     Dates: start: 20200616, end: 20200617
  3. TACROLIMUS [Suspect]
     Active Substance: TACROLIMUS
     Dosage: 2.6 MG, DOSAGE AND FREQUENCY PER INSTITUTIONAL PRACTICES
     Route: 042
     Dates: start: 20200618, end: 20200618
  4. TACROLIMUS [Suspect]
     Active Substance: TACROLIMUS
     Dosage: SECOND DOSE, 1.5MG, BID
     Route: 042
     Dates: start: 20200624, end: 20200626
  5. TACROLIMUS [Suspect]
     Active Substance: TACROLIMUS
     Dosage: 1 MG, BID, THIRD DOSE, FOR 1 MONTH 6 DAYS, DOSE DECREASED
     Route: 042
     Dates: start: 20200627, end: 20200801
  6. TACROLIMUS [Suspect]
     Active Substance: TACROLIMUS
     Dosage: 1MG, QD, FOURTH DOSE
     Route: 042
     Dates: start: 20200802, end: 20200804
  7. TACROLIMUS [Suspect]
     Active Substance: TACROLIMUS
     Dosage: 1 MILLIGRAM,BID
     Route: 042
     Dates: start: 20200805, end: 20200806
  8. LEVOFLOXACIN [Concomitant]
     Active Substance: LEVOFLOXACIN
     Indication: Product used for unknown indication
     Dosage: UNK
     Route: 065
     Dates: start: 20200605, end: 20200616
  9. AMIODARONE [Concomitant]
     Active Substance: AMIODARONE
     Indication: Product used for unknown indication
     Dosage: UNK
     Route: 065
     Dates: start: 20200608, end: 20200627
  10. INSULIN LISPRO [Concomitant]
     Active Substance: INSULIN LISPRO
     Indication: Product used for unknown indication
     Dosage: UNK
     Route: 065
     Dates: start: 20200608, end: 20200623
  11. PEPCID [Concomitant]
     Active Substance: FAMOTIDINE
     Indication: Product used for unknown indication
     Dosage: UNK
     Route: 065
     Dates: start: 20200614, end: 20200702
  12. FIDAXOMICIN [Concomitant]
     Active Substance: FIDAXOMICIN
     Indication: Product used for unknown indication
     Dosage: UNK
     Route: 065
     Dates: start: 20200616, end: 20200626
  13. COLESEVELAM [Concomitant]
     Active Substance: COLESEVELAM
     Indication: Product used for unknown indication
     Dosage: UNK
     Route: 065
     Dates: start: 20200626, end: 20200626
  14. FENOFIBRATE [Concomitant]
     Active Substance: FENOFIBRATE
     Indication: Product used for unknown indication
     Route: 065
  15. ASPIRIN [Concomitant]
     Active Substance: ASPIRIN
     Indication: Product used for unknown indication
     Route: 065
  16. ELIQUIS [Concomitant]
     Active Substance: APIXABAN
     Indication: Product used for unknown indication
     Route: 065
  17. LOSARTAN AND HYDROCHLOROTHIAZIDE [Concomitant]
     Active Substance: HYDROCHLOROTHIAZIDE\LOSARTAN POTASSIUM
     Indication: Product used for unknown indication
     Route: 065
  18. PREDNISONE [Concomitant]
     Active Substance: PREDNISONE
     Indication: Product used for unknown indication
     Dosage: UNK
     Route: 065
  19. GRANULOCYTE COLONY-STIMULATING FACTOR NOS [Concomitant]
     Active Substance: GRANULOCYTE COLONY-STIMULATING FACTOR NOS
     Indication: White blood cell count decreased
     Dosage: UNK
     Dates: start: 20220721

REACTIONS (2)
  - Pneumocystis jirovecii pneumonia [Recovered/Resolved]
  - Pneumocystis jirovecii pneumonia [Recovered/Resolved]

NARRATIVE: CASE EVENT DATE: 20200715
